FAERS Safety Report 7360803-0 (Version None)
Quarter: 2011Q1

REPORT INFORMATION
  Report Type: 
  Country: None (occurrence: None)
  Receive Date: 20110318
  Receipt Date: 20110309
  Transmission Date: 20110831
  Serious: Yes (Hospitalization, Other)
  Sender: FDA-Public Use
  Company Number: US-AMGEN-USASP2011013213

PATIENT
  Age: 52 Year
  Sex: Female

DRUGS (2)
  1. METHOTREXATE [Concomitant]
     Dosage: 5 MG, QWK
     Dates: start: 20090101
  2. ENBREL [Suspect]
     Indication: RHEUMATOID ARTHRITIS
     Dosage: 50 MG, QWK
     Dates: start: 20100802, end: 20110224

REACTIONS (6)
  - ASTHENIA [None]
  - ADVERSE DRUG REACTION [None]
  - CONVULSION [None]
  - HYPOAESTHESIA FACIAL [None]
  - HYPOAESTHESIA [None]
  - HEADACHE [None]
